FAERS Safety Report 17418519 (Version 3)
Quarter: 2020Q2

REPORT INFORMATION
  Report Type: Spontaneous
  Country: US (occurrence: US)
  Receive Date: 20200214
  Receipt Date: 20200401
  Transmission Date: 20200713
  Serious: Yes (Hospitalization, Other)
  Sender: FDA-Public Use
  Company Number: US-PARI RESPIRATORY EQUIPMENT, INC.-2020PAR00005

PATIENT
  Age: 9 Year
  Sex: Female
  Weight: 24.7 kg

DRUGS (14)
  1. CAYSTON [Concomitant]
     Active Substance: AZTREONAM
     Dosage: 1 ML, 3X/DAY EVERY OTHER MONTH
  2. MULTIVITAMIN WITH FLUORIDE [Concomitant]
     Active Substance: .ALPHA.-TOCOPHEROL\.ALPHA.-TOCOPHEROL ACETATE\.ALPHA.-TOCOPHEROL ACETATE, DL-\ASCORBIC ACID\CHOLECALCIFEROL\COBALAMIN\CYANOCOBALAMIN\FLUORIDE ION\FOLIC ACID\NIACIN\NIACINAMIDE\PYRIDOXINE\PYRIDOXINE HYDROCHLORIDE\RIBOFLAVIN\SODIUM ASCORBATE\SODIUM FLUORIDE\THIAMINE\THIAMINE MONONITRATE\VITAMIN A\VITA
  3. AQUADEKS PEDIATRIC MULTIVITAMIN WITH ZINC [Concomitant]
     Dosage: 5 ML, 1X/DAY
     Route: 048
  4. FERROUS SULFATE. [Concomitant]
     Active Substance: FERROUS SULFATE
     Dosage: 1 TABLETS (325 MG TOTAL SALT (65 MG ELEMENTAL)), 1X/DAY
     Route: 048
  5. VITAMIN E [Concomitant]
     Active Substance: .ALPHA.-TOCOPHEROL
     Dosage: 400 IU, 1X/DAY
     Route: 048
  6. PULMOZYME [Concomitant]
     Active Substance: DORNASE ALFA
     Dosage: 2.5 MG, 1X/DAY
  7. TOBRAMYCIN (PF) [Concomitant]
     Dosage: NEBULIZE 5 ML, 2X/DAY WITH PARI LC PLUS NEBULIZER TWICE DAILY IN REPEATED CYCLES OF 28 DAYS ON FOLLO
  8. NUTRITIONAL SUPPLEMENT LIQUID [Concomitant]
  9. KITABIS PAK [Suspect]
     Active Substance: TOBRAMYCIN
     Indication: CYSTIC FIBROSIS
     Dosage: 300 MG, 2X/DAY (ROTATE 28 DAYS ON)
     Dates: start: 2019, end: 2019
  10. AZITHROMYCIN ANHYDROUS. [Concomitant]
     Active Substance: AZITHROMYCIN ANHYDROUS
     Dosage: 1 TABLETS, 3X/WEEK ON MONDAY, WEDNESDAY, AND FRIDAY
     Route: 048
  11. VENTOLIN HFA [Concomitant]
     Active Substance: ALBUTEROL SULFATE
     Dosage: 2 PUFF EVERY 4 HOURS AS NEEDED
  12. SODIUM CHLORIDE. [Concomitant]
     Active Substance: SODIUM CHLORIDE
     Dosage: 4 ML, 2X/DAY
  13. ORKAMBI [Concomitant]
     Active Substance: IVACAFTOR\LUMACAFTOR
     Dosage: 2 TABLETS, 2X/DAY
     Route: 048
  14. CYANOCOBALAMIN. [Concomitant]
     Active Substance: CYANOCOBALAMIN
     Dosage: 200 UNK, 1X/WEEK X 2 DOSES, THAN 200 ?G MONTHLY

REACTIONS (9)
  - Infective pulmonary exacerbation of cystic fibrosis [Recovered/Resolved]
  - Blood iron decreased [Not Recovered/Not Resolved]
  - Vascular access site bruising [Not Recovered/Not Resolved]
  - Blood 25-hydroxycholecalciferol decreased [Not Recovered/Not Resolved]
  - Staphylococcal infection [Recovering/Resolving]
  - Normocytic anaemia [Not Recovered/Not Resolved]
  - Blood chloride increased [Not Recovered/Not Resolved]
  - Pulmonary function test decreased [Recovering/Resolving]
  - Vascular access complication [Recovered/Resolved]

NARRATIVE: CASE EVENT DATE: 2020
